FAERS Safety Report 7264135-0 (Version None)
Quarter: 2011Q1

REPORT INFORMATION
  Report Type: 
  Country: None (occurrence: None)
  Receive Date: 20110131
  Receipt Date: 20101228
  Transmission Date: 20110831
  Serious: Yes (Other)
  Sender: FDA-Public Use
  Company Number: NL-AMGEN-NLDSP2010013411

PATIENT
  Age: 51 Year
  Sex: Female

DRUGS (5)
  1. ASCAL [Concomitant]
     Dosage: UNK
  2. LOVAZA [Concomitant]
     Dosage: UNK
  3. ATROPIN [Concomitant]
     Dosage: UNK
  4. PANTOZOL [Concomitant]
     Dosage: UNK
  5. ENBREL [Suspect]
     Indication: RHEUMATOID ARTHRITIS
     Dosage: 50 MG, WEEKLY
     Dates: start: 20101125

REACTIONS (3)
  - HEADACHE [None]
  - OEDEMA PERIPHERAL [None]
  - INJECTION SITE ERYTHEMA [None]
